FAERS Safety Report 6107824-3 (Version None)
Quarter: 2009Q1

REPORT INFORMATION
  Report Type: 
  Country: None (occurrence: None)
  Receive Date: 20090309
  Receipt Date: 20090304
  Transmission Date: 20090719
  Serious: Yes (Death, Hospitalization)
  Sender: FDA-Public Use
  Company Number: PHHY2008MX00815

PATIENT
  Sex: Female

DRUGS (1)
  1. CO-DIOVAN T32564+FCTAB [Suspect]
     Indication: HYPERTENSION
     Dosage: UNK, UNK
     Dates: start: 20071101

REACTIONS (1)
  - PERITONITIS [None]
